FAERS Safety Report 7480652-2 (Version None)
Quarter: 2011Q2

REPORT INFORMATION
  Report Type: 
  Country: None (occurrence: None)
  Receive Date: 20110516
  Receipt Date: 20110503
  Transmission Date: 20111010
  Serious: Yes (Other)
  Sender: FDA-Public Use
  Company Number: US-JNJFOC-20110301490

PATIENT
  Sex: Male
  Weight: 107.5 kg

DRUGS (2)
  1. TACLONEX [Concomitant]
  2. STELARA [Suspect]
     Indication: PSORIASIS
     Route: 058
     Dates: start: 20100101, end: 20101201

REACTIONS (3)
  - AMNESIA [None]
  - HEADACHE [None]
  - INTRACRANIAL PRESSURE INCREASED [None]
